FAERS Safety Report 4685160-X (Version None)
Quarter: 2005Q2

REPORT INFORMATION
  Report Type: 
  Country: None (occurrence: None)
  Receive Date: 20050608
  Receipt Date: 20050523
  Transmission Date: 20051028
  Serious: Yes (Other)
  Sender: FDA-Public Use
  Company Number: PHNU2005DE02052

PATIENT
  Age: 75 Year
  Sex: Male

DRUGS (2)
  1. EMSELEX EXTENDED RELEASE [Suspect]
     Indication: URINARY INCONTINENCE
     Dosage: 7.5 MG, QD
     Route: 048
     Dates: start: 20050405, end: 20050512
  2. TRIAMTERENE AND HYDROCHLOROTHIAZIDE [Concomitant]
     Dosage: 1 DF, QD
     Route: 048

REACTIONS (2)
  - DYSPNOEA [None]
  - PULMONARY OEDEMA [None]
